FAERS Safety Report 6422022-1 (Version None)
Quarter: 2009Q4

REPORT INFORMATION
  Report Type: 
  Country: None (occurrence: None)
  Receive Date: 20091029
  Receipt Date: 20091029
  Transmission Date: 20100525
  Serious: Yes (Other)
  Sender: FDA-Public Use
  Company Number: None

PATIENT
  Sex: Female
  Weight: 8.38 kg

DRUGS (5)
  1. SYNAGIS [Suspect]
     Indication: PREMATURE BABY
     Dosage: 125 MG Q28 DAYS IM
     Route: 030
     Dates: start: 20091026
  2. SYNAGIS [Suspect]
     Indication: SMALL FOR DATES BABY
     Dosage: 125 MG Q28 DAYS IM
     Route: 030
     Dates: start: 20091026
  3. POLY-VI-SOL WITH FE [Concomitant]
  4. PRILOSEC [Concomitant]
  5. MYLICON [Concomitant]

REACTIONS (4)
  - CONVULSION [None]
  - FATIGUE [None]
  - FEELING ABNORMAL [None]
  - UNRESPONSIVE TO STIMULI [None]
